FAERS Safety Report 5357046-9 (Version None)
Quarter: 2007Q2

REPORT INFORMATION
  Report Type: 
  Country: None (occurrence: None)
  Receive Date: 20070614
  Receipt Date: 20070608
  Transmission Date: 20071010
  Serious: Yes (Hospitalization)
  Sender: FDA-Public Use
  Company Number: HQWYE552908JUN07

PATIENT
  Sex: Female

DRUGS (8)
  1. CORDARONE [Suspect]
     Route: 048
  2. NEXIUM [Suspect]
     Route: 048
  3. VERCYTE [Concomitant]
     Dosage: UNKNOWN
     Dates: end: 20070406
  4. KAYEXALATE [Concomitant]
     Dosage: UNKNOWN
     Dates: end: 20070406
  5. SPECIAFOLDINE [Concomitant]
     Dosage: UNKNOWN
     Dates: end: 20070406
  6. ALUMINUM HYDROXIDE AND MAGNESIUM TRISILICATE [Concomitant]
     Dosage: UNKNOWN
     Dates: end: 20070406
  7. LEVOTHYROXINE SODIUM [Suspect]
     Indication: HYPOTHYROIDISM
     Route: 048
  8. LASIX [Concomitant]
     Route: 048
     Dates: end: 20070406

REACTIONS (1)
  - HYPOCALCAEMIA [None]
